FAERS Safety Report 9198003 (Version 1)
Quarter: 2013Q1

REPORT INFORMATION
  Report Type: Spontaneous
  Country: CA (occurrence: CA)
  Receive Date: 20130328
  Receipt Date: 20130328
  Transmission Date: 20140127
  Serious: Yes (Other)
  Sender: FDA-Public Use
  Company Number: CA-NICOBRDEVP-2013-04972

PATIENT
  Age: 16 Year
  Sex: Male
  Weight: 85 kg

DRUGS (2)
  1. RISPERIDONE (UNKNOWN) [Suspect]
     Indication: PSYCHOTIC DISORDER
     Dosage: 4 MG, DAILY
     Route: 065
  2. RISPERIDONE (UNKNOWN) [Suspect]
     Dosage: 2 MG, DAILY
     Route: 065

REACTIONS (2)
  - Hypertonia [Unknown]
  - Muscle rigidity [Unknown]
